FAERS Safety Report 13660375 (Version 1)
Quarter: 2017Q2

REPORT INFORMATION
  Report Type: Spontaneous
  Country: US (occurrence: US)
  Receive Date: 20170616
  Receipt Date: 20170616
  Transmission Date: 20170830
  Serious: No
  Sender: FDA-Public Use
  Company Number: US-FDC LIMITED-2016RIS00127

PATIENT
  Age: 82 Year
  Sex: Female
  Weight: 56.69 kg

DRUGS (2)
  1. TIMOLOL MALEATE. [Suspect]
     Active Substance: TIMOLOL MALEATE
     Indication: GLAUCOMA
     Dosage: 1 GTT, 1X/DAY IN EACH EYE
     Dates: start: 2016, end: 201607
  2. LUMIGAN [Concomitant]
     Active Substance: BIMATOPROST
     Dosage: 1 GTT, 1X/DAY
     Route: 047

REACTIONS (3)
  - Intraocular pressure increased [Recovered/Resolved]
  - Product substitution issue [None]
  - Drug ineffective [Recovered/Resolved]

NARRATIVE: CASE EVENT DATE: 20160531
